FAERS Safety Report 5627469-9 (Version None)
Quarter: 2008Q1

REPORT INFORMATION
  Report Type: 
  Country: None (occurrence: None)
  Receive Date: 20080215
  Receipt Date: 20080204
  Transmission Date: 20080703
  Serious: Yes (Hospitalization)
  Sender: FDA-Public Use
  Company Number: FR-AMGEN-US264442

PATIENT
  Sex: Male

DRUGS (1)
  1. ENBREL [Suspect]
     Indication: DRUG USE FOR UNKNOWN INDICATION
     Dosage: 50 MG AND THEN 25 MG (FREQUENCY UNKNOWN)
     Route: 058
     Dates: start: 20050101

REACTIONS (3)
  - SEPSIS [None]
  - WOUND ABSCESS [None]
  - WOUND INFECTION [None]
